FAERS Safety Report 8431583-2 (Version None)
Quarter: 2012Q2

REPORT INFORMATION
  Report Type: 
  Country: None (occurrence: None)
  Receive Date: 20120607
  Receipt Date: 20120607
  Transmission Date: 20120825
  Serious: Yes (Hospitalization)
  Sender: FDA-Public Use
  Company Number: None

PATIENT
  Sex: Female
  Weight: 95.2554 kg

DRUGS (2)
  1. SULFAMETHOXAZOLE AND TRIMETHOPRIM [Suspect]
     Indication: ABSCESS
     Dosage: 800-160 TABS, 1 TAB TWICE DAY, MOUTH
     Route: 048
     Dates: start: 20120517
  2. SULFAMETHOXAZOLE AND TRIMETHOPRIM [Suspect]
     Indication: ANTIBIOTIC THERAPY
     Dosage: 800-160 TABS, 1 TAB TWICE DAY, MOUTH
     Route: 048
     Dates: start: 20120517

REACTIONS (1)
  - DRUG HYPERSENSITIVITY [None]
